FAERS Safety Report 7177952-2 (Version None)
Quarter: 2010Q4

REPORT INFORMATION
  Report Type: 
  Country: None (occurrence: None)
  Receive Date: 20101220
  Receipt Date: 20101210
  Transmission Date: 20110411
  Serious: Yes (Other)
  Sender: FDA-Public Use
  Company Number: PL-B.I. PHARMACEUTICALS,INC./RIDGEFIELD-2010-DE-06886GD

PATIENT
  Sex: Male

DRUGS (3)
  1. NEVIRAPINE [Suspect]
     Indication: HIV INFECTION
     Dates: start: 20010301, end: 20030901
  2. STAVUDINE [Suspect]
     Indication: HIV INFECTION
     Dates: start: 20010301, end: 20030901
  3. DIDANOSINE [Suspect]
     Indication: HIV INFECTION
     Dates: start: 20010301, end: 20030901

REACTIONS (5)
  - ABDOMINAL PAIN [None]
  - ASTHENIA [None]
  - CHEST PAIN [None]
  - MYALGIA [None]
  - THROMBOCYTOPENIA [None]
